FAERS Safety Report 11804475 (Version 1)
Quarter: 2015Q4

REPORT INFORMATION
  Report Type: Spontaneous
  Country: US (occurrence: US)
  Receive Date: 20151204
  Receipt Date: 20151204
  Transmission Date: 20160305
  Serious: No
  Sender: FDA-Public Use
  Company Number: US-GILEAD-2015-0185248

PATIENT
  Sex: Female

DRUGS (2)
  1. SOVALDI [Suspect]
     Active Substance: SOFOSBUVIR
     Indication: PRODUCT USED FOR UNKNOWN INDICATION
     Dosage: UNK
     Route: 065
     Dates: start: 20151121, end: 20151121
  2. DAKLINZA [Concomitant]
     Active Substance: DACLATASVIR
     Dosage: UNK
     Route: 048
     Dates: start: 20151121, end: 20151121

REACTIONS (5)
  - Abdominal pain upper [Unknown]
  - Diarrhoea [Unknown]
  - Vomiting [Unknown]
  - Pain [Unknown]
  - Feeling abnormal [Unknown]
